FAERS Safety Report 4294705-3 (Version None)
Quarter: 2004Q1

REPORT INFORMATION
  Report Type: 
  Country: None (occurrence: None)
  Receive Date: 20040213
  Receipt Date: 20031016
  Transmission Date: 20041129
  Serious: Yes (Hospitalization)
  Sender: FDA-Public Use
  Company Number: AU-ROCHE-349398

PATIENT
  Age: 49 Year
  Sex: Male
  Weight: 87 kg

DRUGS (5)
  1. CAPECITABINE [Suspect]
     Dosage: INTERMITTENT THERAPY OF 2 WEEKS TREATMENT FOLLOWED BY ONE WEEK REST.
     Route: 048
     Dates: start: 20030829, end: 20031014
  2. CAPECITABINE [Suspect]
     Dosage: INTERMITTENT THERAPY OF 2 WEEKS TREATMENT FOLLOWED BY ONE WEEK REST.
     Route: 048
     Dates: start: 20031024
  3. OXALIPLATIN [Suspect]
     Dosage: GIVEN ON DAY ONE OF A THREE WEEK CYCLE.
     Route: 042
     Dates: start: 20030829, end: 20031014
  4. OXALIPLATIN [Suspect]
     Route: 042
     Dates: start: 20031024
  5. DIAFORMIN [Concomitant]

REACTIONS (2)
  - DIARRHOEA [None]
  - PERIANAL ABSCESS [None]
